FAERS Safety Report 10158963 (Version 1)
Quarter: 2014Q2

REPORT INFORMATION
  Report Type: Spontaneous
  Country: US (occurrence: US)
  Receive Date: 20140508
  Receipt Date: 20140508
  Transmission Date: 20141212
  Serious: No
  Sender: FDA-Public Use
  Company Number: US-BIOGENIDEC-2014BI039866

PATIENT
  Age: 43 Year
  Sex: Female

DRUGS (2)
  1. TECFIDERA [Suspect]
     Indication: MULTIPLE SCLEROSIS
     Dates: start: 20130901, end: 20130927
  2. COPAXONE [Concomitant]

REACTIONS (2)
  - Musculoskeletal disorder [Not Recovered/Not Resolved]
  - Erythema [Recovered/Resolved]
